FAERS Safety Report 5834287-5 (Version None)
Quarter: 2008Q3

REPORT INFORMATION
  Report Type: 
  Country: None (occurrence: None)
  Receive Date: 20080805
  Receipt Date: 20080801
  Transmission Date: 20090109
  Serious: Yes (Life-Threatening, Hospitalization, Other)
  Sender: FDA-Public Use
  Company Number: PHHY2008JP12425

PATIENT
  Sex: Female

DRUGS (8)
  1. LUDIOMIL [Suspect]
     Indication: DEPRESSION
     Dosage: 25 MG, UNK
     Route: 048
     Dates: start: 20070201, end: 20080711
  2. TOLEDOMIN [Interacting]
     Dosage: 25 MG, UNK
     Route: 048
     Dates: start: 20080513, end: 20080711
  3. DESYREL [Interacting]
     Dosage: 25 MG, UNK
     Route: 048
     Dates: start: 19990405, end: 20080711
  4. SOLANAX [Interacting]
     Dosage: 0.8 MG, UNK
     Route: 048
     Dates: end: 20080711
  5. COLONEL [Interacting]
     Dosage: 3.6 MG, UNK
     Dates: end: 20080711
  6. DEXAMETHASONE SODIUM PHOSPHATE [Concomitant]
  7. ARTZ [Concomitant]
  8. EVAMYL [Concomitant]
     Dosage: UNK
     Dates: start: 19990405

REACTIONS (27)
  - APATHY [None]
  - ARTHRALGIA [None]
  - ASTHENIA [None]
  - BACK PAIN [None]
  - BLADDER CATHETERISATION [None]
  - BLOOD ALKALINE PHOSPHATASE DECREASED [None]
  - BLOOD GLUCOSE INCREASED [None]
  - DECREASED APPETITE [None]
  - DEPRESSED LEVEL OF CONSCIOUSNESS [None]
  - DEPRESSION [None]
  - DRUG INEFFECTIVE [None]
  - DRUG INTERACTION [None]
  - DYSPHAGIA [None]
  - FACIAL BONES FRACTURE [None]
  - FALL [None]
  - HYPOKALAEMIA [None]
  - HYPOPHAGIA [None]
  - HYPOTENSION [None]
  - INSOMNIA [None]
  - OSTEOPOROSIS [None]
  - PAIN [None]
  - PNEUMONIA ASPIRATION [None]
  - SPINAL OSTEOARTHRITIS [None]
  - SUPRAVENTRICULAR EXTRASYSTOLES [None]
  - URINARY RETENTION [None]
  - URINE POTASSIUM INCREASED [None]
  - WHITE BLOOD CELL COUNT INCREASED [None]
